FAERS Safety Report 7092975-X (Version None)
Quarter: 2010Q4

REPORT INFORMATION
  Report Type: 
  Country: None (occurrence: None)
  Receive Date: 20101110
  Receipt Date: 20101102
  Transmission Date: 20110411
  Serious: Yes (Other)
  Sender: FDA-Public Use
  Company Number: US-PFIZER INC-2010139977

PATIENT
  Sex: Female

DRUGS (3)
  1. LIPITOR [Suspect]
     Indication: BLOOD CHOLESTEROL ABNORMAL
     Dosage: 40 MG, UNK
     Route: 048
     Dates: start: 20050101
  2. IBANDRONATE SODIUM [Concomitant]
     Indication: BONE DENSITY ABNORMAL
     Dosage: UNK MG, UNK
     Route: 048
     Dates: start: 20050101
  3. ALEVE (CAPLET) [Concomitant]
     Indication: NERVE INJURY
     Dosage: UNK MG, UNK
     Route: 048
     Dates: start: 20080101

REACTIONS (1)
  - WRIST FRACTURE [None]
